FAERS Safety Report 7787352-X (Version None)
Quarter: 2011Q3

REPORT INFORMATION
  Report Type: 
  Country: None (occurrence: None)
  Receive Date: 20110929
  Receipt Date: 20110915
  Transmission Date: 20111222
  Serious: Yes (Other)
  Sender: FDA-Public Use
  Company Number: PHHO2011FR15807

PATIENT
  Sex: Male
  Weight: 72 kg

DRUGS (1)
  1. GLEEVEC [Suspect]
     Indication: GASTROINTESTINAL STROMAL TUMOUR
     Dosage: UNK
     Dates: start: 20070613

REACTIONS (2)
  - NEOPLASM MALIGNANT [None]
  - PROSTATE CANCER [None]
